FAERS Safety Report 10659609 (Version 1)
Quarter: 2014Q4

REPORT INFORMATION
  Report Type: Spontaneous
  Country: US (occurrence: US)
  Receive Date: 20141217
  Receipt Date: 20141217
  Transmission Date: 20150529
  Serious: No
  Sender: FDA-Public Use
  Company Number: US-GLAXOSMITHKLINE-US2014018024

PATIENT
  Age: 62 Year
  Sex: Female

DRUGS (4)
  1. TARGET NTS CLEAR 21 MG TRANSDERMAL PATCH [Suspect]
     Active Substance: NICOTINE
     Indication: SMOKING CESSATION THERAPY
     Dates: start: 20141027, end: 20141105
  2. NICODERM CQ [Suspect]
     Active Substance: NICOTINE
  3. TARGET NTS CLEAR 21 MG TRANSDERMAL PATCH [Suspect]
     Active Substance: NICOTINE
  4. NICODERM CQ [Suspect]
     Active Substance: NICOTINE
     Indication: SMOKING CESSATION THERAPY
     Dates: start: 20141027, end: 20141105

REACTIONS (2)
  - Rash [Not Recovered/Not Resolved]
  - Application site pruritus [Not Recovered/Not Resolved]
